FAERS Safety Report 8286431-0 (Version None)
Quarter: 2012Q2

REPORT INFORMATION
  Report Type: 
  Country: None (occurrence: None)
  Receive Date: 20120411
  Receipt Date: 20120411
  Transmission Date: 20120825
  Serious: Yes (Other)
  Sender: FDA-Public Use
  Company Number: None

PATIENT
  Sex: Female
  Weight: 51.7101 kg

DRUGS (2)
  1. CEFADROXIL [Suspect]
     Indication: PHARYNGITIS
     Dosage: 2 CAP PER DAY  ; 1 CAP
     Dates: start: 20120315
  2. CEFADROXIL [Suspect]
     Indication: PHARYNGITIS
     Dosage: 2 CAP PER DAY  ; 1 CAP
     Dates: start: 20120316

REACTIONS (2)
  - PAIN [None]
  - BREAST SWELLING [None]
